APPROVED DRUG PRODUCT: FRAGMIN
Active Ingredient: DALTEPARIN SODIUM
Strength: 10,000IU/4ML (2,500IU/ML)
Dosage Form/Route: INJECTABLE;SUBCUTANEOUS
Application: N020287 | Product #012
Applicant: PFIZER INC
Approved: Mar 15, 2022 | RLD: Yes | RS: No | Type: RX